FAERS Safety Report 9686999 (Version 1)
Quarter: 2013Q4

REPORT INFORMATION
  Report Type: Spontaneous
  Country: US (occurrence: US)
  Receive Date: 20131113
  Receipt Date: 20131113
  Transmission Date: 20140711
  Serious: Yes (Death, Hospitalization)
  Sender: FDA-Public Use
  Company Number: PHHY2013US126322

PATIENT
  Age: 78 Year
  Sex: Male

DRUGS (1)
  1. METHOTREXATE [Suspect]
     Dosage: 3.5 G/M2

REACTIONS (4)
  - Death [Fatal]
  - Drug clearance decreased [Recovered/Resolved]
  - Renal failure acute [Recovered/Resolved]
  - Osteosarcoma recurrent [Unknown]
